FAERS Safety Report 22356654 (Version 2)
Quarter: 2023Q2

REPORT INFORMATION
  Report Type: Report from Study
  Country: US (occurrence: US)
  Receive Date: 20230523
  Receipt Date: 20230531
  Transmission Date: 20230721
  Serious: Yes (Hospitalization)
  Sender: FDA-Public Use
  Company Number: US-PFIZER INC-US-GBT-020340

PATIENT
  Age: 29 Year
  Sex: Female

DRUGS (17)
  1. VOXELOTOR [Suspect]
     Active Substance: VOXELOTOR
     Indication: Sickle cell disease
     Dosage: 1500 MG, 1X/DAY
     Route: 048
     Dates: start: 20200504, end: 2020
  2. VOXELOTOR [Suspect]
     Active Substance: VOXELOTOR
     Dosage: 1000 MG, 1X/DAY (REASON FOR DOSE CHANGE: 4-5 DOSE/ WEEK LIMITED ADHERENCE)
     Route: 048
     Dates: start: 20201014, end: 2020
  3. VOXELOTOR [Suspect]
     Active Substance: VOXELOTOR
     Dosage: REASON FOR DOSE CHANGE: ONLY TAKING 4-5 DOSES A WEEK LIMITED ADHERENCE
     Route: 048
     Dates: start: 20201216, end: 2021
  4. VOXELOTOR [Suspect]
     Active Substance: VOXELOTOR
     Dosage: REASON FOR DOSE CHANGE: PILL BURDEN
     Route: 048
     Dates: start: 20210324, end: 20211103
  5. VOXELOTOR [Suspect]
     Active Substance: VOXELOTOR
     Dosage: REASON FOR CHANGE: PARTICIPANT WAS HOSPITALIZED
     Route: 048
     Dates: start: 20220406, end: 20220610
  6. VOXELOTOR [Suspect]
     Active Substance: VOXELOTOR
     Dosage: REASON FOR CHANGE: DELIVERY ISSUE HAS NOT RESTARTED
     Route: 048
     Dates: start: 20220624, end: 20221001
  7. FOLVITE [Concomitant]
     Active Substance: FOLIC ACID
     Indication: Sickle cell disease
     Dosage: 1 MG, 1X/DAY
     Route: 048
     Dates: start: 20130813
  8. ERGOCALCIFEROL [Concomitant]
     Active Substance: ERGOCALCIFEROL
     Indication: Sickle cell disease
     Dosage: 50000 IU, WEEKLY
     Route: 048
     Dates: start: 20190925
  9. DIPHENHYDRAMINE [Concomitant]
     Active Substance: DIPHENHYDRAMINE
     Indication: Pruritus
     Dosage: 50 MG/ML, 2X/DAY
     Route: 042
     Dates: start: 20190820
  10. DIPHENHYDRAMINE [Concomitant]
     Active Substance: DIPHENHYDRAMINE
     Dosage: 25 MG/ML, SINGLE
     Route: 042
     Dates: start: 20190905
  11. VITAMIN D3 [Concomitant]
     Active Substance: CHOLECALCIFEROL
     Indication: Sickle cell disease
     Dosage: 2000 IU, 1X/DAY
     Route: 048
     Dates: start: 20191030, end: 20230304
  12. VITAMIN B12 [Concomitant]
     Active Substance: CYANOCOBALAMIN
     Indication: Sickle cell disease
     Dosage: 1000 UG, NIGHTLY
     Route: 048
     Dates: start: 20220610, end: 20230202
  13. GABAPENTIN [Concomitant]
     Active Substance: GABAPENTIN
     Indication: Sickle cell disease
     Dosage: 300 MG, 2X/DAY
     Route: 048
     Dates: start: 20211108, end: 20230304
  14. DILAUDID [Concomitant]
     Active Substance: HYDROMORPHONE HYDROCHLORIDE
     Indication: Sickle cell disease
     Dosage: 4 MG, Q4H
     Route: 048
     Dates: start: 20211108, end: 20230427
  15. MS CONTIN [Concomitant]
     Active Substance: MORPHINE SULFATE
     Indication: Sickle cell disease
     Dosage: 30 MG, Q12H
     Route: 048
     Dates: start: 20220707
  16. NAPROXEN [Concomitant]
     Active Substance: NAPROXEN
     Indication: Sickle cell disease
     Dosage: 500 MG, 3X/DAY
     Route: 048
     Dates: start: 20221126, end: 20230202
  17. PANTOPRAZOLE [Concomitant]
     Active Substance: PANTOPRAZOLE
     Indication: Sickle cell disease
     Dosage: 40 MG, 1X/DAY
     Route: 048
     Dates: start: 20211108, end: 20230203

REACTIONS (3)
  - Sickle cell anaemia with crisis [Recovered/Resolved]
  - Migraine [Recovered/Resolved]
  - Acute chest syndrome [Recovered/Resolved]

NARRATIVE: CASE EVENT DATE: 20221126
